FAERS Safety Report 7474310-8 (Version None)
Quarter: 2011Q2

REPORT INFORMATION
  Report Type: 
  Country: None (occurrence: None)
  Receive Date: 20110511
  Receipt Date: 20110502
  Transmission Date: 20111010
  Serious: Yes (Other)
  Sender: FDA-Public Use
  Company Number: FR-AMGEN-FRASP2011021631

PATIENT
  Sex: Female

DRUGS (4)
  1. ENBREL [Suspect]
     Dosage: UNK
     Dates: start: 20101201
  2. ENBREL [Suspect]
     Indication: RHEUMATOID ARTHRITIS
     Dosage: UNK
     Dates: start: 20080401, end: 20090801
  3. ENBREL [Suspect]
     Dosage: UNK
     Dates: end: 20100901
  4. HUMIRA [Suspect]

REACTIONS (4)
  - SURGERY [None]
  - DERMATITIS ALLERGIC [None]
  - SEPTAL PANNICULITIS [None]
  - LIPASE INCREASED [None]
